FAERS Safety Report 17726050 (Version 3)
Quarter: 2021Q3

REPORT INFORMATION
  Report Type: Spontaneous
  Country: US (occurrence: US)
  Receive Date: 20200429
  Receipt Date: 20210715
  Transmission Date: 20211014
  Serious: Yes (Hospitalization, Other)
  Sender: FDA-Public Use
  Company Number: US-PURDUE-USA-2020-0152170

PATIENT
  Age: 48 Year
  Sex: Male

DRUGS (6)
  1. OXYCODONE HYDROCHLORIDE (SIMILAR TO NDA 22?272) [Suspect]
     Active Substance: OXYCODONE HYDROCHLORIDE
     Indication: PRODUCT USED FOR UNKNOWN INDICATION
     Dosage: UNKNOWN
     Route: 065
  2. OXYCODONE HCL TABLETS (RHODES 91?490) [Suspect]
     Active Substance: OXYCODONE HYDROCHLORIDE
     Indication: SPINAL DISORDER
     Dosage: 15 MG, QID
     Route: 048
     Dates: start: 2002
  3. PANTOPRAZOL [Suspect]
     Active Substance: PANTOPRAZOLE SODIUM
     Indication: CONSTIPATION
     Dosage: 40 MG, DAILY
     Route: 048
     Dates: start: 20210102
  4. MIRALAX [Suspect]
     Active Substance: POLYETHYLENE GLYCOL 3350
     Indication: CONSTIPATION
     Dosage: UNK, DAILY
     Route: 048
  5. DOCUSATE SODIUM. [Suspect]
     Active Substance: DOCUSATE SODIUM
     Indication: CONSTIPATION
     Dosage: 100 MG, DAILY
     Route: 048
     Dates: start: 20210102
  6. MOVATEC [Suspect]
     Active Substance: MELOXICAM
     Indication: CONSTIPATION
     Dosage: UNK, DAILY
     Route: 048

REACTIONS (12)
  - Sepsis [Unknown]
  - Dyspnoea [Unknown]
  - Lung disorder [Unknown]
  - Heart rate increased [Unknown]
  - Illness [Unknown]
  - Intestinal obstruction [Unknown]
  - Weight decreased [Unknown]
  - Near death experience [Unknown]
  - Loss of consciousness [Unknown]
  - Cardiac disorder [Unknown]
  - Large intestine perforation [Not Recovered/Not Resolved]
  - Constipation [Recovered/Resolved]

NARRATIVE: CASE EVENT DATE: 20200102
